FAERS Safety Report 8244826-5 (Version None)
Quarter: 2012Q1

REPORT INFORMATION
  Report Type: 
  Country: None (occurrence: None)
  Receive Date: 20120329
  Receipt Date: 20120106
  Transmission Date: 20120608
  Serious: No
  Sender: FDA-Public Use
  Company Number: US-MYLANLABS-2011S1010943

PATIENT
  Age: 47 Year
  Sex: Female
  Weight: 106.6 kg

DRUGS (6)
  1. VICODIN [Suspect]
  2. FLEXERIL [Suspect]
  3. FENTANYL-100 [Suspect]
     Indication: PAIN
     Dosage: Q72H
     Route: 062
     Dates: start: 20110509, end: 20110501
  4. FENTANYL-100 [Suspect]
     Dosage: Q72H
     Route: 062
     Dates: start: 20110501, end: 20110526
  5. FENTANYL-100 [Suspect]
     Indication: BACK PAIN
     Dosage: Q72H
     Route: 062
     Dates: start: 20110509, end: 20110501
  6. FENTANYL-100 [Suspect]
     Dosage: Q72H
     Route: 062
     Dates: start: 20110501, end: 20110526

REACTIONS (7)
  - SEDATION [None]
  - EMOTIONAL DISTRESS [None]
  - DRUG EFFECT INCREASED [None]
  - UNEVALUABLE EVENT [None]
  - SOMNOLENCE [None]
  - MEMORY IMPAIRMENT [None]
  - MENTAL IMPAIRMENT [None]
